FAERS Safety Report 6264291-7 (Version None)
Quarter: 2009Q3

REPORT INFORMATION
  Report Type: 
  Country: None (occurrence: None)
  Receive Date: 20090710
  Receipt Date: 20090629
  Transmission Date: 20100115
  Serious: Yes (Other)
  Sender: FDA-Public Use
  Company Number: US-BAYER-200922998NA

PATIENT
  Age: 29 Year
  Sex: Female

DRUGS (5)
  1. CAMPATH [Suspect]
     Indication: MULTIPLE SCLEROSIS
     Dosage: DAILY X5
     Route: 042
     Dates: start: 20090323, end: 20090327
  2. CYANOCOBALAMIN [Concomitant]
     Dates: start: 20080701
  3. RITALIN [Concomitant]
     Dates: start: 20080701
  4. DARVOCET [Concomitant]
     Dates: start: 20080117
  5. METHYLPREDNISOLONE [Concomitant]
     Dates: start: 20090323, end: 20090325

REACTIONS (1)
  - CHOLECYSTITIS [None]
